FAERS Safety Report 7255775-3 (Version None)
Quarter: 2011Q1

REPORT INFORMATION
  Report Type: 
  Country: None (occurrence: None)
  Receive Date: 20110129
  Receipt Date: 20100824
  Transmission Date: 20110831
  Serious: No
  Sender: FDA-Public Use
  Company Number: US-ABBOTT-10P-163-0667544-00

PATIENT
  Sex: Male
  Weight: 59.928 kg

DRUGS (3)
  1. CELEBREX [Concomitant]
     Indication: PRODUCT USED FOR UNKNOWN INDICATION
  2. HUMIRA [Suspect]
     Indication: RHEUMATOID ARTHRITIS
     Dates: start: 20080101
  3. METHOTREXATE [Concomitant]
     Indication: PRODUCT USED FOR UNKNOWN INDICATION
     Dates: start: 20050101

REACTIONS (7)
  - PYREXIA [None]
  - INJECTION SITE PAIN [None]
  - BRONCHITIS [None]
  - HEADACHE [None]
  - COUGH [None]
  - MALAISE [None]
  - NASOPHARYNGITIS [None]
